FAERS Safety Report 6726624-4 (Version None)
Quarter: 2010Q2

REPORT INFORMATION
  Report Type: 
  Country: None (occurrence: None)
  Receive Date: 20100514
  Receipt Date: 20100503
  Transmission Date: 20101027
  Serious: Yes (Other)
  Sender: FDA-Public Use
  Company Number: IE-GENENTECH-301499

PATIENT
  Age: 45 Year
  Sex: Male

DRUGS (2)
  1. RITUXIMAB [Suspect]
     Indication: POLYCHONDRITIS
     Dosage: UNK
     Route: 065
  2. AZATHIOPRINE [Concomitant]
     Indication: POLYCHONDRITIS
     Dosage: UNK

REACTIONS (2)
  - AORTIC DISORDER [None]
  - CORONARY ARTERY STENOSIS [None]
